FAERS Safety Report 19813586 (Version 2)
Quarter: 2021Q4

REPORT INFORMATION
  Report Type: Spontaneous
  Country: JP (occurrence: JP)
  Receive Date: 20210910
  Receipt Date: 20211006
  Transmission Date: 20220303
  Serious: Yes (Hospitalization)
  Sender: FDA-Public Use
  Company Number: JP-MYLANLABS-2021M1060134

PATIENT
  Age: 66 Year
  Sex: Male

DRUGS (3)
  1. ZOLMITRIPTAN OD [Suspect]
     Active Substance: ZOLMITRIPTAN
     Indication: Migraine
     Route: 048
  2. ACETAMINOPHEN [Suspect]
     Active Substance: ACETAMINOPHEN
     Indication: Abdominal pain upper
     Route: 065
  3. LOMERIZINE [Concomitant]
     Active Substance: LOMERIZINE
     Indication: Prophylaxis
     Route: 065

REACTIONS (2)
  - Intestinal ischaemia [Recovering/Resolving]
  - Drug ineffective [Unknown]
